FAERS Safety Report 15615221 (Version 2)
Quarter: 2020Q1

REPORT INFORMATION
  Report Type: Report from Study
  Country: None (occurrence: US)
  Receive Date: 20181114
  Receipt Date: 20200220
  Transmission Date: 20200409
  Serious: Yes (Hospitalization)
  Sender: FDA-Public Use
  Company Number: US-ABBVIE-18K-163-2434898-00

PATIENT
  Age: 70 Year
  Sex: Female
  Weight: 68.1 kg

DRUGS (3)
  1. HUMIRA [Suspect]
     Active Substance: ADALIMUMAB
     Route: 058
  2. HUMIRA [Suspect]
     Active Substance: ADALIMUMAB
     Indication: PSORIASIS
     Route: 058
  3. HUMIRA [Suspect]
     Active Substance: ADALIMUMAB
     Route: 058

REACTIONS (7)
  - Psoriasis [Not Recovered/Not Resolved]
  - Oesophageal oedema [Recovering/Resolving]
  - Neuropathy peripheral [Not Recovered/Not Resolved]
  - Oesophageal infection [Recovering/Resolving]
  - Oesophageal ulcer [Recovering/Resolving]
  - Diabetes mellitus [Not Recovered/Not Resolved]
  - Stress [Unknown]

NARRATIVE: CASE EVENT DATE: 2018
